FAERS Safety Report 18147252 (Version 2)
Quarter: 2020Q3

REPORT INFORMATION
  Report Type: Spontaneous
  Country: US (occurrence: US)
  Receive Date: 20200813
  Receipt Date: 20200914
  Transmission Date: 20201103
  Serious: Yes (Death)
  Sender: FDA-Public Use
  Company Number: US-VERTEX PHARMACEUTICALS-2020-016441

PATIENT
  Age: 8 Year
  Sex: Female

DRUGS (1)
  1. SYMDEKO [Suspect]
     Active Substance: IVACAFTOR\TEZACAFTOR
     Indication: CYSTIC FIBROSIS
     Dosage: 50 MG TEZACAFTOR/ 75 MG IVACAFTOR IN AM AND 75 MG IVA IN PM
     Route: 048
     Dates: start: 20190808

REACTIONS (1)
  - Death [Fatal]

NARRATIVE: CASE EVENT DATE: 20200805
